FAERS Safety Report 8327123-9 (Version None)
Quarter: 2012Q2

REPORT INFORMATION
  Report Type: 
  Country: None (occurrence: None)
  Receive Date: 20120501
  Receipt Date: 20120404
  Transmission Date: 20120825
  Serious: No
  Sender: FDA-Public Use
  Company Number: US-SANOFI-AVENTIS-2012SA023538

PATIENT
  Age: 61 Year
  Sex: Male

DRUGS (2)
  1. APIDRA [Suspect]
     Route: 058
  2. SOLOSTAR [Suspect]

REACTIONS (3)
  - INJECTION SITE PAIN [None]
  - PRODUCT QUALITY ISSUE [None]
  - LACERATION [None]
